FAERS Safety Report 23306214 (Version 1)
Quarter: 2023Q4

REPORT INFORMATION
  Report Type: Spontaneous
  Country: US (occurrence: None)
  Receive Date: 20231218
  Receipt Date: 20231218
  Transmission Date: 20240110
  Serious: No
  Sender: FDA-Public Use
  Company Number: US-ARIS GLOBAL-SUP202308-003271

PATIENT
  Sex: Female

DRUGS (1)
  1. OXTELLAR XR [Suspect]
     Active Substance: OXCARBAZEPINE
     Indication: Product used for unknown indication
     Dosage: 600 MG IN THE MORNING, 600 MG IN AFTERNOON AND 900 MG AT NIGHT

REACTIONS (2)
  - Maternal exposure during pregnancy [Unknown]
  - Wrong technique in product usage process [Unknown]
